FAERS Safety Report 9840770 (Version 1)
Quarter: 2013Q4

REPORT INFORMATION
  Report Type: Spontaneous
  Country: US (occurrence: None)
  Receive Date: 20131223
  Receipt Date: 20131223
  Transmission Date: 20140711
  Serious: No
  Sender: FDA-Public Use
  Company Number: 221160LEO

PATIENT
  Sex: Male

DRUGS (4)
  1. PICATO [Suspect]
     Indication: PRECANCEROUS SKIN LESION
     Dosage: TOPICAL
     Dates: start: 20130315, end: 20130316
  2. METOPROLOL (METOPROLOL) (25) [Concomitant]
  3. ASPIRIN (ACETYLSALICYLIC ACID) (81) [Concomitant]
  4. ACE INHIBITOR (ACE INHIBITOR NOS) [Concomitant]

REACTIONS (4)
  - Drug ineffective [None]
  - Drug administration error [None]
  - Drug administered at inappropriate site [None]
  - Incorrect product storage [None]
